FAERS Safety Report 20074543 (Version 2)
Quarter: 2022Q2

REPORT INFORMATION
  Report Type: Spontaneous
  Country: US (occurrence: US)
  Receive Date: 20211116
  Receipt Date: 20220513
  Transmission Date: 20220720
  Serious: Yes (Other)
  Sender: FDA-Public Use
  Company Number: US-PFIZER INC-202101513778

PATIENT
  Age: 84 Year
  Sex: Female

DRUGS (1)
  1. XELJANZ XR [Suspect]
     Active Substance: TOFACITINIB CITRATE
     Dosage: 11 MG, TAKE ONE TABLET DAILY

REACTIONS (6)
  - Spinal pain [Unknown]
  - Sacral pain [Unknown]
  - Condition aggravated [Unknown]
  - Gait disturbance [Unknown]
  - Discomfort [Unknown]
  - Therapeutic product effect incomplete [Unknown]
